FAERS Safety Report 4970777-5 (Version None)
Quarter: 2006Q2

REPORT INFORMATION
  Report Type: 
  Country: None (occurrence: None)
  Receive Date: 20060412
  Receipt Date: 20051104
  Transmission Date: 20061013
  Serious: Yes (Life-Threatening)
  Sender: FDA-Public Use
  Company Number: JP-SANOFI-SYNTHELABO-F01200502316

PATIENT
  Sex: Male
  Weight: 72 kg

DRUGS (9)
  1. OXALIPLATIN [Suspect]
     Indication: COLON CANCER
     Dosage: 120MG/BODY=64.2MG/M2,
     Route: 042
     Dates: start: 20051006, end: 20051006
  2. FLUOROURACIL [Suspect]
     Dosage: 500MG/BODY=267.4MG/M2 IN BOLUS THEN 3000MG/BODY=1604.3MG/M2 IN CONTINUOUS INFUSION.
     Route: 042
     Dates: start: 20051006, end: 20051006
  3. CALCIUM LEVOFOLINATE [Suspect]
     Dosage: 375MG/BODY =200.5MG/M2 IN INFUSION ON DAY 1
     Route: 042
     Dates: start: 20051006, end: 20051006
  4. NASEA [Concomitant]
     Route: 042
  5. DECADRON [Concomitant]
     Route: 042
  6. LAC B [Concomitant]
     Route: 048
  7. MARZULENE S [Concomitant]
     Route: 048
  8. POSTERISAN [Concomitant]
     Route: 054
  9. BUTYRIC ACID BACTERIA AGENT [Concomitant]
     Route: 048

REACTIONS (5)
  - CERVIX DISORDER [None]
  - DIARRHOEA [None]
  - FLUSHING [None]
  - PRURITUS [None]
  - RASH [None]
